FAERS Safety Report 4307483-6 (Version None)
Quarter: 2004Q1

REPORT INFORMATION
  Report Type: 
  Country: None (occurrence: None)
  Receive Date: 20040226
  Receipt Date: 20040217
  Transmission Date: 20041129
  Serious: Yes (Life-Threatening, Hospitalization)
  Sender: FDA-Public Use
  Company Number: CA-JNJFOC-20040204155

PATIENT
  Age: 65 Year
  Sex: Female
  Weight: 63 kg

DRUGS (6)
  1. REMICADE [Suspect]
     Indication: RHEUMATOID ARTHRITIS
     Dosage: SEE IMAGE
     Route: 042
     Dates: start: 20031001
  2. MEDROL [Concomitant]
  3. SYNTHROID [Concomitant]
  4. CATAPRES [Concomitant]
  5. PLAQUENIL [Concomitant]
  6. DURAGESIC [Concomitant]

REACTIONS (7)
  - ABDOMINAL ABSCESS [None]
  - ABDOMINAL PAIN [None]
  - CATARACT [None]
  - CYSTITIS [None]
  - INTESTINAL RESECTION [None]
  - SEPSIS [None]
  - VISUAL ACUITY REDUCED [None]
